FAERS Safety Report 25611973 (Version 1)
Quarter: 2025Q3

REPORT INFORMATION
  Report Type: Spontaneous
  Country: GB (occurrence: GB)
  Receive Date: 20250728
  Receipt Date: 20250728
  Transmission Date: 20251021
  Serious: Yes (Other)
  Sender: TORRENT PHARMA INC.
  Company Number: None

PATIENT
  Sex: Male
  Weight: 73 kg

DRUGS (2)
  1. SILDENAFIL [Suspect]
     Active Substance: SILDENAFIL
     Indication: Sexual dysfunction
     Route: 065
  2. ESCITALOPRAM [Concomitant]
     Active Substance: ESCITALOPRAM OXALATE
     Indication: Anxiety disorder
     Route: 065

REACTIONS (2)
  - Incorrect dose administered [Unknown]
  - Peyronie^s disease [Not Recovered/Not Resolved]

NARRATIVE: CASE EVENT DATE: 20240701
